FAERS Safety Report 23258531 (Version 1)
Quarter: 2023Q4

REPORT INFORMATION
  Report Type: Report from Study
  Country: CA (occurrence: CA)
  Receive Date: 20231204
  Receipt Date: 20231204
  Transmission Date: 20240109
  Serious: Yes (Other)
  Sender: FDA-Public Use
  Company Number: CA-HLS-202302658

PATIENT
  Age: 45 Year
  Sex: Male

DRUGS (1)
  1. CLOZARIL [Suspect]
     Active Substance: CLOZAPINE
     Indication: Product used for unknown indication
     Dosage: PATIENT REGULAR DOSAGE IS AM: 200 MG AND HS: 575 MG.
     Route: 048
     Dates: start: 20141014

REACTIONS (4)
  - Neutrophilia [Unknown]
  - Hallucination [Unknown]
  - Product dose omission issue [Unknown]
  - White blood cell count increased [Unknown]

NARRATIVE: CASE EVENT DATE: 20231116
